FAERS Safety Report 6308921-X (Version None)
Quarter: 2009Q3

REPORT INFORMATION
  Report Type: 
  Country: None (occurrence: None)
  Receive Date: 20090813
  Receipt Date: 20090420
  Transmission Date: 20100115
  Serious: Yes (Other)
  Sender: FDA-Public Use
  Company Number: US-ALLERGAN-0905498US

PATIENT

DRUGS (2)
  1. COMBIGAN [Suspect]
     Indication: INTRAOCULAR PRESSURE INCREASED
     Dosage: UNK, UNKNOWN
     Route: 047
  2. COMBIGAN [Suspect]
     Indication: POSTOPERATIVE CARE

REACTIONS (1)
  - CORNEAL DISORDER [None]
